FAERS Safety Report 24325936 (Version 1)
Quarter: 2024Q3

REPORT INFORMATION
  Report Type: Spontaneous
  Country: IT (occurrence: IT)
  Receive Date: 20240917
  Receipt Date: 20240917
  Transmission Date: 20241017
  Serious: Yes (Life-Threatening, Hospitalization, Other)
  Sender: UCB
  Company Number: IT-UCBSA-2024044657

PATIENT
  Age: 19 Year
  Sex: Female

DRUGS (18)
  1. LEVETIRACETAM [Suspect]
     Active Substance: LEVETIRACETAM
     Indication: Status dystonicus
     Dosage: UNK
  2. LEVETIRACETAM [Suspect]
     Active Substance: LEVETIRACETAM
     Indication: Encephalopathy
  3. LEVETIRACETAM [Suspect]
     Active Substance: LEVETIRACETAM
     Indication: Gene mutation
  4. LEVETIRACETAM [Suspect]
     Active Substance: LEVETIRACETAM
     Indication: Off label use
  5. TETRABENAZINE [Suspect]
     Active Substance: TETRABENAZINE
     Indication: Status dystonicus
  6. TETRABENAZINE [Suspect]
     Active Substance: TETRABENAZINE
     Indication: Encephalopathy
  7. TETRABENAZINE [Suspect]
     Active Substance: TETRABENAZINE
     Indication: Gene mutation
  8. CARBIDOPA\LEVODOPA [Suspect]
     Active Substance: CARBIDOPA\LEVODOPA
     Indication: Status dystonicus
     Dosage: UNK
  9. CARBIDOPA\LEVODOPA [Suspect]
     Active Substance: CARBIDOPA\LEVODOPA
     Indication: Encephalopathy
  10. CARBIDOPA\LEVODOPA [Suspect]
     Active Substance: CARBIDOPA\LEVODOPA
     Indication: Gene mutation
  11. TRIHEXYPHENIDYL [Suspect]
     Active Substance: TRIHEXYPHENIDYL
     Indication: Status dystonicus
     Dosage: UNK
  12. TRIHEXYPHENIDYL [Suspect]
     Active Substance: TRIHEXYPHENIDYL
     Indication: Encephalopathy
  13. TRIHEXYPHENIDYL [Suspect]
     Active Substance: TRIHEXYPHENIDYL
     Indication: Gene mutation
  14. DIAZEPAM [Concomitant]
     Active Substance: DIAZEPAM
     Indication: Status dystonicus
     Dosage: ENDORECTAL
  15. DIAZEPAM [Concomitant]
     Active Substance: DIAZEPAM
     Dosage: 20 MG
     Route: 054
  16. DEXMEDETOMIDINE [Concomitant]
     Active Substance: DEXMEDETOMIDINE
     Indication: Status dystonicus
     Dosage: UNK
  17. MIDAZOLAM [Concomitant]
     Active Substance: MIDAZOLAM
     Indication: Status dystonicus
     Dosage: UNK
     Route: 042
  18. PROPOFOL [Concomitant]
     Active Substance: PROPOFOL
     Indication: Status dystonicus
     Dosage: UNK

REACTIONS (2)
  - Drug ineffective for unapproved indication [Unknown]
  - Off label use [Unknown]
